FAERS Safety Report 4388097-9 (Version None)
Quarter: 2004Q2

REPORT INFORMATION
  Report Type: 
  Country: None (occurrence: None)
  Receive Date: 20040623
  Receipt Date: 20040616
  Transmission Date: 20050107
  Serious: Yes (Hospitalization)
  Sender: FDA-Public Use
  Company Number: KII-2004-0011419

PATIENT
  Age: 35 Year
  Sex: Female

DRUGS (5)
  1. THEOPHYLLINE [Suspect]
     Dosage: ORAL
     Route: 048
  2. NAPROXEN [Suspect]
     Dosage: ORAL
     Route: 048
  3. ACETAMINOPHEN AND HYDROCODONE BITARTRATE [Suspect]
     Dosage: ORAL
     Route: 048
  4. COCAINE (COCAINE) [Suspect]
     Dosage: INHALATION
     Route: 055
  5. SALICYLATES (SALICYLATES) [Suspect]

REACTIONS (7)
  - BLOOD POTASSIUM DECREASED [None]
  - BLOOD PRESSURE SYSTOLIC INCREASED [None]
  - MEDICATION ERROR [None]
  - MULTIPLE DRUG OVERDOSE [None]
  - RESPIRATORY RATE INCREASED [None]
  - SOMNOLENCE [None]
  - VOMITING [None]
